FAERS Safety Report 10469064 (Version 1)
Quarter: 2014Q3

REPORT INFORMATION
  Report Type: Spontaneous
  Country: IT (occurrence: IT)
  Receive Date: 20140923
  Receipt Date: 20140923
  Transmission Date: 20150326
  Serious: Yes (Other)
  Sender: FDA-Public Use
  Company Number: IT-BRISTOL-MYERS SQUIBB COMPANY-21388715

PATIENT
  Age: 67 Year
  Sex: Male

DRUGS (7)
  1. REPAGLINIDE. [Suspect]
     Active Substance: REPAGLINIDE
     Indication: TYPE 2 DIABETES MELLITUS
     Dosage: LAST DOSE: 19AUG14
     Route: 048
     Dates: start: 20140101
  2. BENERVA [Concomitant]
     Active Substance: THIAMINE
  3. OXIVENT [Concomitant]
     Active Substance: OXITROPIUM BROMIDE
  4. CLENIL [Concomitant]
     Active Substance: BECLOMETHASONE DIPROPIONATE
  5. LYRICA [Concomitant]
     Active Substance: PREGABALIN
  6. METFORMIN HCL [Suspect]
     Active Substance: METFORMIN HYDROCHLORIDE
     Indication: TYPE 2 DIABETES MELLITUS
     Dosage: LAST DOSE: 19AUG14
     Route: 048
     Dates: start: 20140101
  7. BRONCOVALEAS [Concomitant]
     Active Substance: ALBUTEROL

REACTIONS (3)
  - Presyncope [Recovering/Resolving]
  - Hypoglycaemia [Recovering/Resolving]
  - Cold sweat [Recovering/Resolving]

NARRATIVE: CASE EVENT DATE: 20140819
